FAERS Safety Report 8955985 (Version 1)
Quarter: 2012Q4

REPORT INFORMATION
  Report Type: 
  Country: US (occurrence: US)
  Receive Date: 20121210
  Receipt Date: 20121210
  Transmission Date: 20130627
  Serious: Yes (Other)
  Sender: FDA-Public Use
  Company Number: US-ELI_LILLY_AND_COMPANY-US201211008765

PATIENT
  Age: 57 Year
  Sex: Female

DRUGS (8)
  1. CYMBALTA [Suspect]
     Indication: DEPRESSION
     Dosage: 60 mg, bid
  2. CYMBALTA [Suspect]
     Dosage: 60 mg, bid
  3. WELLBUTRIN [Concomitant]
  4. JANUMET [Concomitant]
  5. CLONAZEPAM [Concomitant]
  6. CRESTOR [Concomitant]
  7. LAMICTAL [Concomitant]
  8. MIRTAZAPIN [Concomitant]

REACTIONS (6)
  - Surgery [Recovered/Resolved]
  - Weight decreased [Unknown]
  - Wrong technique in drug usage process [Unknown]
  - Depression [Not Recovered/Not Resolved]
  - Constipation [Recovered/Resolved]
  - Visual impairment [Unknown]
